FAERS Safety Report 9897256 (Version 1)
Quarter: 2014Q1

REPORT INFORMATION
  Report Type: Spontaneous
  Country: US (occurrence: US)
  Receive Date: 20140214
  Receipt Date: 20140214
  Transmission Date: 20141002
  Serious: No
  Sender: FDA-Public Use
  Company Number: US-009507513-1402USA006225

PATIENT
  Age: 31 Year
  Sex: Female

DRUGS (3)
  1. DULERA [Suspect]
     Indication: ASTHMA
     Dosage: 2 DF, QAM, 2 DOSES IN MORNING AND 2 DOSES AT NIGHT
     Route: 055
     Dates: start: 2011
  2. DULERA [Suspect]
     Indication: HYPERSENSITIVITY
     Dosage: 2 DF, QPM, 2 DOSES IN MORNING AND 2 DOSES AT NIGHT
     Route: 055
     Dates: start: 2011
  3. MONTELUKAST SODIUM [Concomitant]

REACTIONS (4)
  - Bronchial disorder [Not Recovered/Not Resolved]
  - Dyspnoea [Not Recovered/Not Resolved]
  - Product quality issue [Unknown]
  - Circumstance or information capable of leading to medication error [Unknown]
